FAERS Safety Report 5388812-1 (Version None)
Quarter: 2007Q3

REPORT INFORMATION
  Report Type: 
  Country: None (occurrence: None)
  Receive Date: 20070712
  Receipt Date: 20070629
  Transmission Date: 20080115
  Serious: Yes (Hospitalization, Other)
  Sender: FDA-Public Use
  Company Number: 2007BI013238

PATIENT
  Age: 47 Year
  Sex: Female

DRUGS (1)
  1. NATALIZUMAB [Suspect]
     Indication: MULTIPLE SCLEROSIS
     Dosage: 300 MG; QM; IV
     Route: 042
     Dates: start: 20070502

REACTIONS (11)
  - ABSCESS [None]
  - ALANINE AMINOTRANSFERASE INCREASED [None]
  - ARTHRALGIA [None]
  - ASPARTATE AMINOTRANSFERASE INCREASED [None]
  - CARDIAC DISORDER [None]
  - FALL [None]
  - INCOHERENT [None]
  - JOINT INJURY [None]
  - MENTAL STATUS CHANGES [None]
  - SEPSIS [None]
  - WOUND INFECTION STAPHYLOCOCCAL [None]
